FAERS Safety Report 8013637-8 (Version None)
Quarter: 2011Q4

REPORT INFORMATION
  Report Type: 
  Country: None (occurrence: None)
  Receive Date: 20111227
  Receipt Date: 20111227
  Transmission Date: 20120403
  Serious: Yes (Disabling, Other)
  Sender: FDA-Public Use
  Company Number: None

PATIENT
  Sex: Female
  Weight: 81.6475 kg

DRUGS (1)
  1. ENTOCORT EC [Suspect]
     Indication: COLITIS
     Dosage: 3MG - 24 HR CAPS EACH A.M. WEANING OFF NOW DUE TO PROBLEM
     Dates: start: 20100101, end: 20110101

REACTIONS (3)
  - TOOTH FRACTURE [None]
  - TOOTH LOSS [None]
  - LOOSE TOOTH [None]
